FAERS Safety Report 6600668-5 (Version None)
Quarter: 2010Q1

REPORT INFORMATION
  Report Type: 
  Country: None (occurrence: None)
  Receive Date: 20100223
  Receipt Date: 20100223
  Transmission Date: 20100710
  Serious: Yes (Hospitalization)
  Sender: FDA-Public Use
  Company Number: None

PATIENT
  Age: 32 Year
  Sex: Female
  Weight: 99.7913 kg

DRUGS (1)
  1. BIDIL [Suspect]
     Indication: HYPERTENSION
     Dosage: 3 TIMES A DAY PO
     Route: 048
     Dates: start: 20100219, end: 20100222

REACTIONS (5)
  - BLOOD PRESSURE INCREASED [None]
  - DIZZINESS [None]
  - HEADACHE [None]
  - HEART RATE INCREASED [None]
  - SOMNOLENCE [None]
